FAERS Safety Report 12839993 (Version 4)
Quarter: 2016Q4

REPORT INFORMATION
  Report Type: Spontaneous
  Country: US (occurrence: US)
  Receive Date: 20161012
  Receipt Date: 20161220
  Transmission Date: 20170207
  Serious: Yes (Other)
  Sender: FDA-Public Use
  Company Number: US-PFIZER INC-2016471967

PATIENT
  Age: 30 Year
  Sex: Female

DRUGS (10)
  1. METOPROLOL SUCCINATE. [Concomitant]
     Active Substance: METOPROLOL SUCCINATE
     Dosage: 50 MG, DAILY (FOR 30 DAYS)
     Route: 048
     Dates: start: 20160502
  2. PILOCARPINE HCL [Concomitant]
     Active Substance: PILOCARPINE HYDROCHLORIDE
     Dosage: 5 MG, 2X/DAY (FOR 90 DAYS)
     Route: 048
     Dates: start: 20160810
  3. NITROGLYCERIN. [Concomitant]
     Active Substance: NITROGLYCERIN
     Dosage: 0.4 MG, UNK
     Route: 002
     Dates: start: 20160121
  4. TYLENOL WITH CODEINE [Concomitant]
     Active Substance: ACETAMINOPHEN\CODEINE PHOSPHATE
     Dosage: UNK, EVERY 4 HRS
     Route: 048
     Dates: start: 20161013
  5. CYCLOBENZAPRINE [Concomitant]
     Active Substance: CYCLOBENZAPRINE
     Dosage: 10 MG, 3X/DAY
     Route: 048
     Dates: start: 20160818
  6. ISOSORBIDE MONONITRATE. [Concomitant]
     Active Substance: ISOSORBIDE MONONITRATE
     Dosage: 30 MG, DAILY (EVERY DAY IN THE MORNING)
     Route: 048
     Dates: start: 20160621
  7. LISINOPRIL. [Concomitant]
     Active Substance: LISINOPRIL
     Dosage: 20 MG, DAILY (TAKE 2 TABLETS EVERY DAY)
     Route: 048
     Dates: start: 20160818
  8. PREMARIN [Suspect]
     Active Substance: ESTROGENS, CONJUGATED
     Indication: OESTROGEN REPLACEMENT THERAPY
     Dosage: 1.25 MG, 1X/DAY (90 DAYS)
     Route: 048
     Dates: start: 1984
  9. ATIVAN [Concomitant]
     Active Substance: LORAZEPAM
     Dosage: 1 MG, AS NEEDED (EVERY 8 HOURS)
     Route: 048
     Dates: start: 20161013
  10. FUROSEMIDE. [Concomitant]
     Active Substance: FUROSEMIDE
     Dosage: 20 MG, DAILY
     Route: 048
     Dates: start: 20160818

REACTIONS (6)
  - Systemic lupus erythematosus [Not Recovered/Not Resolved]
  - Fatigue [Unknown]
  - Movement disorder [Unknown]
  - Pain [Unknown]
  - Listless [Unknown]
  - Asthenia [Unknown]

NARRATIVE: CASE EVENT DATE: 1984
